FAERS Safety Report 7216223-2 (Version None)
Quarter: 2011Q1

REPORT INFORMATION
  Report Type: 
  Country: None (occurrence: None)
  Receive Date: 20110107
  Receipt Date: 20110103
  Transmission Date: 20110831
  Serious: Yes (Hospitalization, Other)
  Sender: FDA-Public Use
  Company Number: BR-ABBOTT-11P-020-0695350-00

PATIENT
  Sex: Female
  Weight: 66 kg

DRUGS (16)
  1. URSACOL [Concomitant]
     Route: 048
     Dates: start: 20070101
  2. TOPIRAMATE [Concomitant]
     Indication: CARDIOVASCULAR DISORDER
     Route: 048
     Dates: start: 20101001
  3. CLONAZEPAM [Concomitant]
     Indication: SLEEP DISORDER THERAPY
     Dosage: 1 TABLET AND A HALF ONCE A DAY
     Route: 048
     Dates: start: 20090101
  4. DORILAX (PARACETAMOL, CARISOPRODOL, AND CAFFEINE) [Concomitant]
     Indication: PAIN
     Route: 048
     Dates: start: 20010101
  5. HUMIRA [Suspect]
     Indication: RHEUMATOID ARTHRITIS
     Route: 058
     Dates: start: 20060101, end: 20101201
  6. OMEPRAZOLE [Concomitant]
     Indication: GASTRIC DISORDER
     Route: 048
     Dates: start: 20070101
  7. AD TIL (RHODOPSIN) [Concomitant]
     Indication: PROPHYLAXIS
  8. PREDNISONE [Concomitant]
     Indication: RHEUMATOID ARTHRITIS
     Route: 048
     Dates: start: 20010101
  9. SIMVASTATIN [Concomitant]
     Indication: BLOOD CHOLESTEROL INCREASED
     Route: 048
     Dates: start: 20050101
  10. HUMIRA [Suspect]
     Indication: CROHN'S DISEASE
     Route: 058
  11. AD TIL (RHODOPSIN) [Concomitant]
     Indication: BONE EROSION
     Route: 048
     Dates: start: 20090101
  12. TYLENOL-500 [Concomitant]
     Route: 048
     Dates: start: 20010101
  13. OMEPRAZOLE [Concomitant]
     Indication: PROPHYLAXIS
  14. HYDROCORTISONE [Concomitant]
     Indication: SWELLING
     Dosage: 1/4 TABLET ONCE A DAY
     Route: 048
     Dates: start: 20010101
  15. UNKNOWN DIURETIC [Suspect]
     Indication: PRODUCT USED FOR UNKNOWN INDICATION
  16. CYMBALTA [Concomitant]
     Indication: DEPRESSION
     Route: 048
     Dates: start: 20101001

REACTIONS (12)
  - MUSCULAR WEAKNESS [None]
  - HEPATIC CIRRHOSIS [None]
  - SWELLING [None]
  - ARRHYTHMIA [None]
  - BLOOD POTASSIUM DECREASED [None]
  - ARTHRALGIA [None]
  - THYROID NEOPLASM [None]
  - WEIGHT DECREASED [None]
  - GAIT DISTURBANCE [None]
  - HEADACHE [None]
  - CHEST PAIN [None]
  - TOOTH DECALCIFICATION [None]
